FAERS Safety Report 7390767-5 (Version None)
Quarter: 2011Q2

REPORT INFORMATION
  Report Type: 
  Country: None (occurrence: None)
  Receive Date: 20110404
  Receipt Date: 20110324
  Transmission Date: 20111010
  Serious: No
  Sender: FDA-Public Use
  Company Number: US-BIOGENIDEC-2011BI011433

PATIENT
  Sex: Female

DRUGS (1)
  1. TYSABRI [Suspect]
     Indication: MULTIPLE SCLEROSIS
     Route: 042
     Dates: start: 20090727

REACTIONS (7)
  - VOMITING [None]
  - WEIGHT DECREASED [None]
  - FALL [None]
  - BACK INJURY [None]
  - SINUSITIS [None]
  - IMPAIRED GASTRIC EMPTYING [None]
  - INFLAMMATION [None]
